FAERS Safety Report 8522645 (Version 2)
Quarter: 2012Q4

REPORT INFORMATION
  Report Type: 
  Country: US (occurrence: US)
  Receive Date: 20120419
  Receipt Date: 20121129
  Transmission Date: 20130627
  Serious: Yes (Hospitalization)
  Sender: FDA-Public Use
  Company Number: US-GLAXOSMITHKLINE-A0932560A

PATIENT
  Age: 68 Year
  Sex: Female

DRUGS (1)
  1. AVANDIA [Suspect]
     Indication: TYPE 2 DIABETES MELLITUS
     Dosage: 4MG Unknown
     Route: 065

REACTIONS (4)
  - Cerebrovascular accident [Unknown]
  - Atrial thrombosis [Unknown]
  - Oedema peripheral [Unknown]
  - Atrial fibrillation [Unknown]
